FAERS Safety Report 8723264 (Version 9)
Quarter: 2014Q1

REPORT INFORMATION
  Report Type: Report from Study
  Country: JP (occurrence: JP)
  Receive Date: 20120814
  Receipt Date: 20140303
  Transmission Date: 20141002
  Serious: Yes (Hospitalization)
  Sender: FDA-Public Use
  Company Number: JP-JNJFOC-20120805431

PATIENT
  Age: 60 Year
  Sex: Male
  Weight: 64 kg

DRUGS (14)
  1. STELARA [Suspect]
     Indication: PSORIASIS
     Dosage: TEN MONTHS OF THERAPY
     Route: 058
     Dates: start: 20111003, end: 20111003
  2. IMMUNOSUPPRESSIVE THERAPY [Concomitant]
  3. ANTEBATE [Concomitant]
     Indication: PSORIASIS
     Route: 061
     Dates: start: 20061001
  4. OXAROL [Concomitant]
     Indication: PSORIASIS
     Route: 061
     Dates: start: 20061001
  5. STELARA [Suspect]
     Indication: PSORIASIS
     Route: 058
     Dates: start: 20130528, end: 20130528
  6. STELARA [Suspect]
     Indication: PSORIASIS
     Route: 058
     Dates: start: 20130308, end: 20130308
  7. STELARA [Suspect]
     Indication: PSORIASIS
     Route: 058
     Dates: start: 20130822, end: 20130822
  8. STELARA [Suspect]
     Indication: PSORIASIS
     Route: 058
     Dates: start: 20131112
  9. STELARA [Suspect]
     Indication: PSORIASIS
     Route: 058
     Dates: start: 20121218, end: 20121218
  10. STELARA [Suspect]
     Indication: PSORIASIS
     Route: 058
     Dates: start: 20120925, end: 20120925
  11. STELARA [Suspect]
     Indication: PSORIASIS
     Route: 058
     Dates: start: 20120704, end: 20120704
  12. STELARA [Suspect]
     Indication: PSORIASIS
     Route: 058
     Dates: start: 20120417, end: 20120417
  13. STELARA [Suspect]
     Indication: PSORIASIS
     Route: 058
     Dates: start: 20120124, end: 20120124
  14. STELARA [Suspect]
     Indication: PSORIASIS
     Route: 058
     Dates: start: 20111030, end: 20111030

REACTIONS (1)
  - Pneumonia [Not Recovered/Not Resolved]
